FAERS Safety Report 7369045-6 (Version None)
Quarter: 2011Q1

REPORT INFORMATION
  Report Type: 
  Country: None (occurrence: None)
  Receive Date: 20110323
  Receipt Date: 20110316
  Transmission Date: 20110831
  Serious: Yes (Disabling, Other)
  Sender: FDA-Public Use
  Company Number: GB-PFIZER INC-2011058593

PATIENT
  Age: 71 Year
  Sex: Male

DRUGS (1)
  1. RAPAMUNE [Suspect]

REACTIONS (1)
  - DYSPHAGIA [None]
